FAERS Safety Report 7289289-1 (Version None)
Quarter: 2011Q1

REPORT INFORMATION
  Report Type: 
  Country: None (occurrence: None)
  Receive Date: 20110211
  Receipt Date: 20110208
  Transmission Date: 20110831
  Serious: Yes (Hospitalization, Other)
  Sender: FDA-Public Use
  Company Number: US-PFIZER INC-2010161791

PATIENT
  Sex: Female

DRUGS (8)
  1. OXYCODONE HCL AND ACETAMINOPHEN [Concomitant]
     Indication: PAIN MANAGEMENT
     Dosage: UNK
     Dates: start: 20071126, end: 20091225
  2. CHANTIX [Suspect]
     Indication: SMOKING CESSATION THERAPY
     Dosage: STARTER PACK
     Dates: start: 20080527, end: 20080627
  3. LORAZEPAM [Concomitant]
     Indication: ANXIETY
     Dosage: UNK
     Dates: start: 20080617
  4. FLOXIN ^DAIICHI^ [Concomitant]
     Indication: DEPRESSION
     Dosage: UNK
     Dates: start: 20000722
  5. HYDROMORPHONE [Concomitant]
     Indication: PAIN MANAGEMENT
     Dosage: UNK
     Dates: start: 20080424, end: 20080718
  6. ALBUTEROL [Concomitant]
     Indication: ASTHMA
     Dosage: UNK
     Dates: start: 20000424
  7. ALBUTEROL [Concomitant]
     Dosage: UNK
     Dates: start: 20000626
  8. CARISOPRODOL [Concomitant]
     Indication: URTICARIA
     Dosage: UNK
     Dates: start: 20071212, end: 20091018

REACTIONS (4)
  - SUICIDE ATTEMPT [None]
  - MULTIPLE DRUG OVERDOSE INTENTIONAL [None]
  - INTENTIONAL OVERDOSE [None]
  - DEPRESSION [None]
